FAERS Safety Report 8781689 (Version 1)
Quarter: 2012Q4

REPORT INFORMATION
  Report Type: 
  Country: US (occurrence: US)
  Receive Date: 20120913
  Receipt Date: 20120913
  Transmission Date: 20130627
  Serious: No
  Sender: FDA-Public Use
  Company Number: US-009507513-1209USA003810

PATIENT

DRUGS (3)
  1. PEGINTRON [Suspect]
     Indication: HEPATITIS C
     Dosage: 150 Microgram, qw
     Route: 058
  2. RIBASPHERE [Suspect]
  3. VICTRELIS [Suspect]

REACTIONS (3)
  - Pyrexia [Recovered/Resolved]
  - Device malfunction [Recovered/Resolved]
  - Drug dose omission [Unknown]
